FAERS Safety Report 18640014 (Version 1)
Quarter: 2020Q4

REPORT INFORMATION
  Report Type: Spontaneous
  Country: US (occurrence: US)
  Receive Date: 20201220
  Receipt Date: 20201220
  Transmission Date: 20210114
  Serious: No
  Sender: FDA-Public Use
  Company Number: US-PACIRA-202000403

PATIENT
  Age: 36 Year
  Sex: Female
  Weight: 62 kg

DRUGS (2)
  1. EXPAREL [Suspect]
     Active Substance: BUPIVACAINE
     Indication: POSTOPERATIVE ANALGESIA
     Dosage: 266 MG MIXED WITH 30 ML OF 0.5% BUPIVACAINE HCL
     Route: 030
     Dates: start: 20200909, end: 20200909
  2. BUPIVACAINE HCL 0.5% [Suspect]
     Active Substance: BUPIVACAINE HYDROCHLORIDE
     Indication: POSTOPERATIVE ANALGESIA
     Dosage: 30 ML MIXED WITH 266 MG OF LIPOSOMAL BUPIVACAINE
     Route: 030
     Dates: start: 20200909, end: 20200909

REACTIONS (4)
  - Incorrect route of product administration [Recovered/Resolved]
  - Dysgeusia [Recovered/Resolved]
  - Off label use [Unknown]
  - Tinnitus [Recovered/Resolved]

NARRATIVE: CASE EVENT DATE: 20200909
